FAERS Safety Report 12925097 (Version 3)
Quarter: 2017Q1

REPORT INFORMATION
  Report Type: Spontaneous
  Country: US (occurrence: US)
  Receive Date: 20161108
  Receipt Date: 20170113
  Transmission Date: 20170428
  Serious: Yes (Other)
  Sender: FDA-Public Use
  Company Number: US-ALLERGAN-1675232US

PATIENT
  Age: 81 Year
  Sex: Female

DRUGS (1)
  1. RESTASIS [Suspect]
     Active Substance: CYCLOSPORINE
     Indication: DRY EYE
     Dosage: 1 GTT, BID
     Route: 047
     Dates: start: 2006

REACTIONS (2)
  - Bronchiectasis [Not Recovered/Not Resolved]
  - Fallopian tube cancer [Recovered/Resolved]

NARRATIVE: CASE EVENT DATE: 2010
